FAERS Safety Report 15832125 (Version 3)
Quarter: 2021Q3

REPORT INFORMATION
  Report Type: Other
  Country: US (occurrence: US)
  Receive Date: 20190116
  Receipt Date: 20210713
  Transmission Date: 20211014
  Serious: Yes (Other)
  Sender: FDA-Public Use
  Company Number: US-ROCHE-2243719

PATIENT
  Age: 76 Year
  Sex: Male

DRUGS (22)
  1. RITUXAN [Suspect]
     Active Substance: RITUXIMAB
     Indication: PRODUCT USED FOR UNKNOWN INDICATION
     Route: 065
  2. AMOXICILLIN. [Concomitant]
     Active Substance: AMOXICILLIN
  3. COVID?19 VACCINE [Concomitant]
     Dates: start: 20210129
  4. COVID?19 VACCINE [Concomitant]
     Dates: start: 20210222
  5. ATOVAQUONE. [Concomitant]
     Active Substance: ATOVAQUONE
  6. CLINDAMYCIN. [Concomitant]
     Active Substance: CLINDAMYCIN
     Dates: start: 20160430
  7. LEVETIRACETAM. [Concomitant]
     Active Substance: LEVETIRACETAM
  8. KETOROLAC [Concomitant]
     Active Substance: KETOROLAC TROMETHAMINE
  9. TYLENOL [Concomitant]
     Active Substance: ACETAMINOPHEN
  10. VALCYTE [Suspect]
     Active Substance: VALGANCICLOVIR HYDROCHLORIDE
     Indication: HIV INFECTION
     Route: 048
     Dates: start: 20160715
  11. PYRIMETHAMINE [Concomitant]
     Active Substance: PYRIMETHAMINE
     Dates: start: 20160430
  12. LEUKOVORIN [Concomitant]
     Active Substance: LEUCOVORIN SODIUM
     Dates: start: 20160430
  13. LEVETIRACETAM. [Concomitant]
     Active Substance: LEVETIRACETAM
  14. VALCYTE [Suspect]
     Active Substance: VALGANCICLOVIR HYDROCHLORIDE
     Indication: CYTOMEGALOVIRUS INFECTION
  15. PANTOPRAZOL [Concomitant]
     Active Substance: PANTOPRAZOLE SODIUM
  16. EFFEXOR [Concomitant]
     Active Substance: VENLAFAXINE HYDROCHLORIDE
  17. FLU VACCINE [Concomitant]
     Active Substance: INFLUENZA VIRUS VACCINE
     Dosage: 23/OCT/2015, 21/OCT/2016, 03/OCT/2017, 03/OCT/2018,
  18. VALCYTE [Suspect]
     Active Substance: VALGANCICLOVIR HYDROCHLORIDE
     Indication: CHORIORETINITIS
  19. BACTRIM [Concomitant]
     Active Substance: SULFAMETHOXAZOLE\TRIMETHOPRIM
     Dosage: 800?160 MG
  20. LAMOTRIGINE. [Concomitant]
     Active Substance: LAMOTRIGINE
  21. LIDODERM [Concomitant]
     Active Substance: LIDOCAINE
  22. AFLURIA NOS [Concomitant]
     Active Substance: INFLUENZA VIRUS VACCINE TRIVALENT TYPE A+B AFLURIA
     Dosage: 30/SEP/2011, 02/OCT/2012, 23/OCT/2013

REACTIONS (18)
  - Pneumonia [Unknown]
  - Lymphoplasmacytoid lymphoma/immunocytoma [Unknown]
  - Bradycardia [Unknown]
  - Cerebral toxoplasmosis [Unknown]
  - Hypotension [Unknown]
  - Pneumothorax traumatic [Unknown]
  - Chronic kidney disease [Unknown]
  - Dizziness [Unknown]
  - Neutropenia [Unknown]
  - Benign prostatic hyperplasia [Unknown]
  - Macular oedema [Unknown]
  - Partial seizures [Unknown]
  - Flank pain [Unknown]
  - Pulmonary embolism [Recovered/Resolved]
  - Fall [Unknown]
  - Visual impairment [Unknown]
  - Rib fracture [Unknown]
  - Balance disorder [Unknown]

NARRATIVE: CASE EVENT DATE: 20160903
